FAERS Safety Report 25838618 (Version 1)
Quarter: 2025Q3

REPORT INFORMATION
  Report Type: Report from Study
  Country: US (occurrence: US)
  Receive Date: 20250923
  Receipt Date: 20250923
  Transmission Date: 20251021
  Serious: Yes (Hospitalization, Other)
  Sender: UCB
  Company Number: US-UCBSA-2024055187

PATIENT
  Age: 57 Year
  Sex: Male
  Weight: 96.2 kg

DRUGS (5)
  1. FINTEPLA [Suspect]
     Active Substance: FENFLURAMINE
     Indication: Lennox-Gastaut syndrome
     Dosage: 4 MILLILITER, 2X/DAY (BID)
     Dates: start: 20240515
  2. FINTEPLA [Suspect]
     Active Substance: FENFLURAMINE
     Dosage: 4 MILLILITER, 2X/DAY (BID)
  3. FINTEPLA [Suspect]
     Active Substance: FENFLURAMINE
     Dosage: 4 MILLILITER, 2X/DAY (BID)
  4. FINTEPLA [Suspect]
     Active Substance: FENFLURAMINE
     Dosage: 4 MILLILITER, 2X/DAY (BID)
  5. BRIVIACT [Suspect]
     Active Substance: BRIVARACETAM
     Indication: Product used for unknown indication

REACTIONS (12)
  - Mental status changes [Not Recovered/Not Resolved]
  - Fall [Not Recovered/Not Resolved]
  - Gastrointestinal tube removal [Not Recovered/Not Resolved]
  - Hypernatraemia [Not Recovered/Not Resolved]
  - Seizure [Not Recovered/Not Resolved]
  - Seizure cluster [Not Recovered/Not Resolved]
  - Nasopharyngitis [Not Recovered/Not Resolved]
  - Decreased appetite [Not Recovered/Not Resolved]
  - Dilatation ventricular [Unknown]
  - Diastolic dysfunction [Unknown]
  - Weight increased [Not Recovered/Not Resolved]
  - Product distribution issue [Unknown]

NARRATIVE: CASE EVENT DATE: 20241021
